FAERS Safety Report 7440119-4 (Version None)
Quarter: 2011Q2

REPORT INFORMATION
  Report Type: 
  Country: None (occurrence: None)
  Receive Date: 20110427
  Receipt Date: 20110329
  Transmission Date: 20111010
  Serious: Yes (Hospitalization, Other)
  Sender: FDA-Public Use
  Company Number: US-BAYER-201039657NA

PATIENT
  Age: 22 Year
  Sex: Female
  Weight: 122 kg

DRUGS (12)
  1. PREDNISONE [Concomitant]
  2. CLARITIN [Concomitant]
  3. YASMIN [Suspect]
     Indication: CONTRACEPTION
     Route: 048
     Dates: start: 20060901, end: 20061201
  4. KETEK [Concomitant]
     Dosage: 400 MG, UNK
  5. AVELOX [Concomitant]
     Dosage: 400 MG, UNK
  6. PSEUDOEPHEDRINE HCL [Concomitant]
  7. MUCINEX [Concomitant]
  8. PENLAC [Concomitant]
     Dosage: 8 %, UNK
  9. ANTIBIOTICS [Concomitant]
     Indication: INFECTION
  10. STEROIDS [Concomitant]
     Indication: INFECTION
  11. BIAXIN XL [Concomitant]
     Dosage: 500 MG, UNK
  12. AZITHROMYCIN [Concomitant]
     Dosage: 250 MG, UNK

REACTIONS (2)
  - PULMONARY THROMBOSIS [None]
  - DEEP VEIN THROMBOSIS [None]
